FAERS Safety Report 4398065-9 (Version None)
Quarter: 2004Q3

REPORT INFORMATION
  Report Type: 
  Country: None (occurrence: None)
  Receive Date: 20040713
  Receipt Date: 20040625
  Transmission Date: 20050211
  Serious: Yes (Hospitalization)
  Sender: FDA-Public Use
  Company Number: DSA_24627_2004

PATIENT
  Age: 45 Year
  Sex: Female

DRUGS (2)
  1. DILTIAZEM HYDROCHLORIDE [Suspect]
     Indication: HYPERTENSION
     Dosage: 100 M Q DAY PO
     Route: 048
     Dates: start: 20030110, end: 20030802
  2. EFONIDIPINE HYDROCHLORIDE [Concomitant]

REACTIONS (3)
  - ALCOHOL USE [None]
  - AUTOIMMUNE HEPATITIS [None]
  - CHRONIC HEPATITIS [None]
